FAERS Safety Report 25575795 (Version 4)
Quarter: 2025Q4

REPORT INFORMATION
  Report Type: Spontaneous
  Country: US (occurrence: US)
  Receive Date: 20250718
  Receipt Date: 20251208
  Transmission Date: 20260117
  Serious: Yes (Other)
  Sender: SUNOVION
  Company Number: US-SMPA-2025SPA009087

PATIENT
  Age: 68 Year
  Sex: Male

DRUGS (2)
  1. ORGOVYX [Suspect]
     Active Substance: RELUGOLIX
     Indication: Prostate cancer
     Dosage: 360 MG, SINGLE
     Route: 048
     Dates: start: 20250616, end: 20250616
  2. ORGOVYX [Suspect]
     Active Substance: RELUGOLIX
     Dosage: 120 MG, QD
     Route: 048
     Dates: start: 20250617

REACTIONS (9)
  - Neuropathy peripheral [Unknown]
  - Constipation [Unknown]
  - Dyspepsia [Unknown]
  - Dysgeusia [Unknown]
  - Vertigo [Unknown]
  - Activities of daily living decreased [Unknown]
  - Somnolence [Unknown]
  - Laziness [Unknown]
  - Fatigue [Unknown]
